FAERS Safety Report 15116838 (Version 1)
Quarter: 2018Q3

REPORT INFORMATION
  Report Type: Spontaneous
  Country: FR (occurrence: FR)
  Receive Date: 20180706
  Receipt Date: 20180706
  Transmission Date: 20181010
  Serious: Yes (Other)
  Sender: FDA-Public Use
  Company Number: FR-TEVA-2018-FR-922238

PATIENT
  Age: 16 Year
  Sex: Female
  Weight: 58 kg

DRUGS (4)
  1. ESCITALOPRAM ARROW 20 MG, COMPRIM? PELLICUL? S?CABLE [Suspect]
     Active Substance: ESCITALOPRAM OXALATE
     Indication: ANXIETY
     Dosage: 20 MILLIGRAM DAILY;
     Route: 048
  2. DIANE 35 MICROGRAMMES, COMPRIM? ENROB? [Concomitant]
     Route: 065
  3. TERCIAN 40 MG/ML, SOLUTION BUVABLE EN GOUTTES [Suspect]
     Active Substance: CYAMEMAZINE
     Indication: ANXIETY
     Dosage: 25 GTT DAILY;
     Route: 048
     Dates: start: 20180104, end: 20180104
  4. ALPRAZOLAM MYLAN 0,50 MG, COMPRIM? S?CABLE [Suspect]
     Active Substance: ALPRAZOLAM
     Indication: ANXIETY
     Dosage: 1.5 MILLIGRAM DAILY;
     Route: 048

REACTIONS (3)
  - Hypotension [Recovered/Resolved]
  - Loss of consciousness [Recovered/Resolved]
  - Headache [Recovered/Resolved]

NARRATIVE: CASE EVENT DATE: 20180105
